FAERS Safety Report 25081085 (Version 2)
Quarter: 2025Q2

REPORT INFORMATION
  Report Type: Spontaneous
  Country: US (occurrence: US)
  Receive Date: 20250315
  Receipt Date: 20250511
  Transmission Date: 20250716
  Serious: No
  Sender: SANOFI AVENTIS
  Company Number: US-SA-2025SA076162

PATIENT
  Age: 1 Year
  Sex: Male
  Weight: 10 kg

DRUGS (1)
  1. DUPIXENT [Suspect]
     Active Substance: DUPILUMAB
     Indication: Dermatitis atopic
     Dosage: 200 MG, Q4W
     Route: 058

REACTIONS (7)
  - Exfoliative rash [Unknown]
  - Skin haemorrhage [Unknown]
  - Rebound atopic dermatitis [Unknown]
  - Dry skin [Unknown]
  - Skin swelling [Unknown]
  - Erythema [Unknown]
  - Eczema [Unknown]

NARRATIVE: CASE EVENT DATE: 20250101
